FAERS Safety Report 8901038 (Version 1)
Quarter: 2012Q4

REPORT INFORMATION
  Report Type: 
  Country: US (occurrence: US)
  Receive Date: 20121109
  Receipt Date: 20121109
  Transmission Date: 20130627
  Serious: No
  Sender: FDA-Public Use
  Company Number: US-BAYER-2012-116017

PATIENT
  Age: 91 Year
  Sex: Female
  Weight: 50 kg

DRUGS (2)
  1. ALEVE CAPLET/TABLET,MIDOL EXTENDED RELIEF CAPLET [Suspect]
     Dosage: 1 DF, PRN
     Route: 048
     Dates: start: 20121030, end: 20121030
  2. VITAMINS [Concomitant]

REACTIONS (3)
  - Pruritus [Recovered/Resolved]
  - Insomnia [None]
  - Drug ineffective [None]
